FAERS Safety Report 13715989 (Version 1)
Quarter: 2017Q3

REPORT INFORMATION
  Report Type: Spontaneous
  Country: PT (occurrence: PT)
  Receive Date: 20170705
  Receipt Date: 20170705
  Transmission Date: 20171127
  Serious: Yes (Hospitalization)
  Sender: FDA-Public Use
  Company Number: PT-ACCORD-053072

PATIENT
  Age: 46 Year
  Sex: Male

DRUGS (1)
  1. CLOZAPINE. [Suspect]
     Active Substance: CLOZAPINE
     Indication: SCHIZOPHRENIA

REACTIONS (7)
  - Lymphopenia [Unknown]
  - Systolic dysfunction [Unknown]
  - Procalcitonin increased [Recovering/Resolving]
  - Pyrexia [Recovered/Resolved]
  - Left ventricular dilatation [Unknown]
  - Hypokinesia [Unknown]
  - C-reactive protein increased [Recovering/Resolving]
